FAERS Safety Report 17750280 (Version 1)
Quarter: 2020Q2

REPORT INFORMATION
  Report Type: Spontaneous
  Country: US (occurrence: US)
  Receive Date: 20200505
  Receipt Date: 20200505
  Transmission Date: 20200714
  Serious: Yes (Other)
  Sender: FDA-Public Use
  Company Number: None

PATIENT
  Age: 70 Year
  Sex: Female
  Weight: 54 kg

DRUGS (7)
  1. ZOLOFT [Concomitant]
     Active Substance: SERTRALINE HYDROCHLORIDE
  2. VENCLEXTA [Concomitant]
     Active Substance: VENETOCLAX
  3. ACYCLOVIR. [Concomitant]
     Active Substance: ACYCLOVIR
  4. RANITIDINE. [Suspect]
     Active Substance: RANITIDINE
     Indication: GASTROOESOPHAGEAL REFLUX DISEASE
     Dosage: ?          QUANTITY:1 TABLET(S);?
     Route: 048
     Dates: start: 19800505, end: 20190114
  5. PROBIOTICS [Concomitant]
     Active Substance: PROBIOTICS NOS
  6. OMERPERZOLE [Concomitant]
  7. LEVOXXYL [Concomitant]

REACTIONS (8)
  - Abdominal pain [None]
  - Nausea [None]
  - Chronic lymphocytic leukaemia [None]
  - Gastrooesophageal reflux disease [None]
  - Neoplasm malignant [None]
  - Impaired gastric emptying [None]
  - Middle insomnia [None]
  - Hiatus hernia [None]

NARRATIVE: CASE EVENT DATE: 20161105
